FAERS Safety Report 22047498 (Version 1)
Quarter: 2023Q1

REPORT INFORMATION
  Report Type: Spontaneous
  Country: US (occurrence: US)
  Receive Date: 20230301
  Receipt Date: 20230301
  Transmission Date: 20230418
  Serious: No
  Sender: FDA-Public Use
  Company Number: US-ABBVIE-4294218

PATIENT
  Sex: Male
  Weight: 86.182 kg

DRUGS (1)
  1. HUMIRA [Suspect]
     Active Substance: ADALIMUMAB
     Indication: Psoriasis
     Route: 058
     Dates: end: 2022

REACTIONS (2)
  - Skin exfoliation [Recovered/Resolved]
  - Drug resistance [Not Recovered/Not Resolved]
